FAERS Safety Report 23294913 (Version 1)
Quarter: 2023Q4

REPORT INFORMATION
  Report Type: Spontaneous
  Country: FR (occurrence: FR)
  Receive Date: 20231213
  Receipt Date: 20231213
  Transmission Date: 20240110
  Serious: Yes (Hospitalization, Other)
  Sender: FDA-Public Use
  Company Number: FR-CELLTRION INC.-2023FR023498

PATIENT

DRUGS (11)
  1. RITUXIMAB [Suspect]
     Active Substance: RITUXIMAB
     Indication: Primary mediastinal large B-cell lymphoma
     Dosage: C1; IV DRIP
     Route: 042
     Dates: start: 20230926
  2. RITUXIMAB [Suspect]
     Active Substance: RITUXIMAB
     Dosage: C2; IV DRIP
     Route: 042
     Dates: start: 20231012
  3. DOXORUBICIN HYDROCHLORIDE [Suspect]
     Active Substance: DOXORUBICIN HYDROCHLORIDE
     Indication: Primary mediastinal large B-cell lymphoma
     Dosage: C1; IV DRIP
     Route: 042
     Dates: start: 20230926
  4. DOXORUBICIN HYDROCHLORIDE [Suspect]
     Active Substance: DOXORUBICIN HYDROCHLORIDE
     Dosage: C2; IV DRIP
     Route: 042
     Dates: start: 20231012
  5. VINCRISTINE SULFATE [Suspect]
     Active Substance: VINCRISTINE SULFATE
     Indication: Primary mediastinal large B-cell lymphoma
     Dosage: C1; IV DRIP
     Route: 042
     Dates: start: 20230926
  6. VINCRISTINE SULFATE [Suspect]
     Active Substance: VINCRISTINE SULFATE
     Dosage: C2; IV DRIP
     Route: 042
     Dates: start: 20231012
  7. PREDNISONE [Suspect]
     Active Substance: PREDNISONE
     Indication: Primary mediastinal large B-cell lymphoma
     Dosage: C1
     Route: 048
     Dates: start: 20230926
  8. PREDNISONE [Suspect]
     Active Substance: PREDNISONE
     Dosage: C2
     Route: 048
     Dates: start: 20231012
  9. SULFAMETHOXAZOLE AND TRIMETHOPRIM [Suspect]
     Active Substance: SULFAMETHOXAZOLE\TRIMETHOPRIM
     Indication: Prophylaxis
     Dosage: BACTRIM FORTE/1 DF, QOD
     Route: 048
     Dates: start: 20230926, end: 20231013
  10. CYCLOPHOSPHAMIDE [Suspect]
     Active Substance: CYCLOPHOSPHAMIDE
     Indication: Primary mediastinal large B-cell lymphoma
     Dosage: C1; IV DRIP
     Route: 042
     Dates: start: 20230926
  11. CYCLOPHOSPHAMIDE [Suspect]
     Active Substance: CYCLOPHOSPHAMIDE
     Dosage: C2; IV DRIP
     Route: 042
     Dates: start: 20231012

REACTIONS (6)
  - Hepatic cytolysis [Unknown]
  - Pancreatitis acute [Recovered/Resolved]
  - Hyperleukocytosis [Unknown]
  - Enterocolitis viral [Unknown]
  - Headache [Unknown]
  - Intentional product use issue [Unknown]

NARRATIVE: CASE EVENT DATE: 20230927
